FAERS Safety Report 19134468 (Version 2)
Quarter: 2021Q2

REPORT INFORMATION
  Report Type: Spontaneous
  Country: JP (occurrence: JP)
  Receive Date: 20210414
  Receipt Date: 20210614
  Transmission Date: 20210717
  Serious: Yes (Other)
  Sender: FDA-Public Use
  Company Number: JP-BAYER-2021-121327

PATIENT
  Age: 46 Year
  Sex: Female
  Weight: 56 kg

DRUGS (4)
  1. ADONA [CARBAZOCHROME SODIUM SULFONATE] [Concomitant]
     Active Substance: CARBAZOCHROME SODIUM SULFONATE
     Indication: UTERINE HAEMORRHAGE
     Dosage: DAILY DOSE 3 DF
     Route: 048
     Dates: start: 20210322, end: 20210404
  2. TRANSAMIN [Concomitant]
     Active Substance: TRANEXAMIC ACID
     Indication: UTERINE HAEMORRHAGE
     Dosage: DAILY DOSE 3 DF
     Route: 048
     Dates: start: 20210322, end: 20210404
  3. MIRENA [Suspect]
     Active Substance: LEVONORGESTREL
     Indication: HEAVY MENSTRUAL BLEEDING
     Dosage: 20 ?G PER DAY, CONTINUOUSLY
     Route: 015
     Dates: start: 20201228
  4. KYUKIKYOGAITO [Concomitant]
     Indication: UTERINE HAEMORRHAGE
     Dosage: DAILY DOSE 9 G
     Route: 048
     Dates: start: 20210322, end: 20210404

REACTIONS (1)
  - Breast cancer female [Unknown]

NARRATIVE: CASE EVENT DATE: 20210412
